FAERS Safety Report 6035262-0 (Version None)
Quarter: 2009Q1

REPORT INFORMATION
  Report Type: 
  Country: None (occurrence: None)
  Receive Date: 20090109
  Receipt Date: 20081230
  Transmission Date: 20090719
  Serious: Yes (Hospitalization)
  Sender: FDA-Public Use
  Company Number: 2008US003534

PATIENT
  Age: 23 Year
  Sex: Female

DRUGS (12)
  1. AMBISOME [Suspect]
     Indication: FUNGAL INFECTION
     Dosage: 275 MG, UID/QD, IV NOS ; 400 MG, UID/QD, IV NOS ; 400 MG, UID/QD, IV NOS
     Route: 042
     Dates: start: 20061020, end: 20061101
  2. AMBISOME [Suspect]
     Indication: FUNGAL INFECTION
     Dosage: 275 MG, UID/QD, IV NOS ; 400 MG, UID/QD, IV NOS ; 400 MG, UID/QD, IV NOS
     Route: 042
     Dates: start: 20061102, end: 20061124
  3. AMBISOME [Suspect]
     Indication: FUNGAL INFECTION
     Dosage: 275 MG, UID/QD, IV NOS ; 400 MG, UID/QD, IV NOS ; 400 MG, UID/QD, IV NOS
     Route: 042
     Dates: start: 20061201, end: 20061221
  4. ELSPAR [Concomitant]
  5. CYTOSAR-U [Concomitant]
  6. CYTARABINE [Concomitant]
  7. ADRIAMYCIN PFS [Concomitant]
  8. RUBEX (DOXORUBICIN HYDROCHLORIDE) [Concomitant]
  9. METHOTREXATE [Concomitant]
  10. ONCOVIN [Concomitant]
  11. CANCIDAS (CASPOFUNGIN) [Concomitant]
  12. POSACONAZOLE [Concomitant]

REACTIONS (1)
  - REVERSIBLE POSTERIOR LEUKOENCEPHALOPATHY SYNDROME [None]
